FAERS Safety Report 13558169 (Version 1)
Quarter: 2017Q2

REPORT INFORMATION
  Report Type: Spontaneous
  Country: PE (occurrence: PE)
  Receive Date: 20170518
  Receipt Date: 20170518
  Transmission Date: 20170830
  Serious: Yes (Hospitalization, Other)
  Sender: FDA-Public Use
  Company Number: PE-GLAXOSMITHKLINE-PE2017GSK071877

PATIENT
  Sex: Female

DRUGS (1)
  1. SERETIDE [Suspect]
     Active Substance: FLUTICASONE PROPIONATE\SALMETEROL XINAFOATE
     Indication: ASTHMA
     Dosage: 250 UNK, QID
     Route: 055
     Dates: start: 201703

REACTIONS (2)
  - Pneumothorax [Unknown]
  - Product use in unapproved indication [Unknown]
